FAERS Safety Report 6766153-5 (Version None)
Quarter: 2010Q2

REPORT INFORMATION
  Report Type: 
  Country: None (occurrence: None)
  Receive Date: 20100611
  Receipt Date: 20100604
  Transmission Date: 20101027
  Serious: Yes (Hospitalization)
  Sender: FDA-Public Use
  Company Number: IT-ABBOTT-05P-083-0311814-00

PATIENT
  Sex: Female
  Weight: 52 kg

DRUGS (8)
  1. HUMIRA [Suspect]
     Indication: RHEUMATOID ARTHRITIS
     Route: 058
     Dates: start: 20050204, end: 20050706
  2. COMMERCIAL HUMIRA [Concomitant]
     Indication: RHEUMATOID ARTHRITIS
     Route: 058
     Dates: start: 20040804
  3. MEDROL [Concomitant]
     Indication: RHEUMATOID ARTHRITIS
     Dates: start: 20011219
  4. QUINAZIDE [Concomitant]
     Indication: HYPERTENSION
     Dates: start: 20030521
  5. METHOTREXATE [Concomitant]
     Indication: RHEUMATOID ARTHRITIS
     Dates: start: 20051122, end: 20051203
  6. PASADEN [Concomitant]
     Indication: TREMOR
     Dates: start: 20051122
  7. CITICOOS [Concomitant]
     Indication: TREMOR
     Dates: start: 20051122
  8. CITICOOS [Concomitant]
     Indication: CONFUSIONAL STATE

REACTIONS (6)
  - BUNDLE BRANCH BLOCK RIGHT [None]
  - CAROTID ARTERY STENOSIS [None]
  - CEREBRAL HYPOPERFUSION [None]
  - DIABETES MELLITUS INADEQUATE CONTROL [None]
  - GASTRIC DISORDER [None]
  - PSEUDOCYST [None]
